FAERS Safety Report 24388722 (Version 1)
Quarter: 2024Q4

REPORT INFORMATION
  Report Type: Spontaneous
  Country: FR (occurrence: FR)
  Receive Date: 20241002
  Receipt Date: 20241002
  Transmission Date: 20250115
  Serious: Yes (Hospitalization, Other)
  Sender: MERCK
  Company Number: None

PATIENT
  Age: 46 Year
  Sex: Female

DRUGS (1)
  1. KEYTRUDA [Suspect]
     Active Substance: PEMBROLIZUMAB
     Indication: Lung adenocarcinoma
     Dosage: 200 MILLIGRAM, Q3W
     Route: 042
     Dates: start: 20240510, end: 20240716

REACTIONS (6)
  - Neutrophil count increased [Recovering/Resolving]
  - Hyperleukocytosis [Recovering/Resolving]
  - Hyponatraemia [Recovering/Resolving]
  - Lymphopenia [Recovering/Resolving]
  - Inflammation [Recovering/Resolving]
  - Pyrexia [Recovered/Resolved]

NARRATIVE: CASE EVENT DATE: 20240801
